FAERS Safety Report 23321927 (Version 1)
Quarter: 2023Q4

REPORT INFORMATION
  Report Type: Spontaneous
  Country: US (occurrence: US)
  Receive Date: 20231220
  Receipt Date: 20231220
  Transmission Date: 20240110
  Serious: No
  Sender: FDA-Public Use
  Company Number: US-PFIZER INC-202300443424

PATIENT
  Age: 64 Year
  Sex: Female
  Weight: 102.06 kg

DRUGS (2)
  1. PAXLOVID [Suspect]
     Active Substance: NIRMATRELVIR\RITONAVIR
     Indication: COVID-19 treatment
     Dosage: 300MILLIGRAMS AND 100MILLIGRAMS DOSE PACK; ORAL
     Route: 048
  2. METOPROLOL [Concomitant]
     Active Substance: METOPROLOL
     Dosage: 75MG IN AM AND 50MG PM, DAILY

REACTIONS (1)
  - Product use complaint [Unknown]
